FAERS Safety Report 10257921 (Version 1)
Quarter: 2014Q2

REPORT INFORMATION
  Report Type: Spontaneous
  Country: US (occurrence: US)
  Receive Date: 20140625
  Receipt Date: 20140625
  Transmission Date: 20141212
  Serious: No
  Sender: FDA-Public Use
  Company Number: US-PFIZER INC-2014169944

PATIENT
  Age: 45 Year
  Sex: Female
  Weight: 72.56 kg

DRUGS (2)
  1. ESTRING [Suspect]
     Dosage: UNK
     Route: 067
     Dates: start: 20140615, end: 20140617
  2. METOPROLOL [Concomitant]
     Indication: HYPERTENSION
     Dosage: 25 MG, DAILY

REACTIONS (7)
  - Off label use [Unknown]
  - Intentional product misuse [Unknown]
  - Dry throat [Unknown]
  - Movement disorder [Unknown]
  - Vulvovaginal discomfort [Unknown]
  - Vulvovaginal pain [Unknown]
  - Product quality issue [Unknown]
